FAERS Safety Report 8344981-2 (Version None)
Quarter: 2012Q2

REPORT INFORMATION
  Report Type: 
  Country: None (occurrence: None)
  Receive Date: 20120508
  Receipt Date: 20120423
  Transmission Date: 20120825
  Serious: Yes (Other)
  Sender: FDA-Public Use
  Company Number: GB-ELI_LILLY_AND_COMPANY-GB201106005418

PATIENT
  Sex: Male

DRUGS (5)
  1. OMEPRAZOLE [Concomitant]
     Dosage: 20 MG, UNK
     Dates: start: 20100607
  2. OLANZAPINE [Suspect]
     Indication: PSYCHOTIC DISORDER
     Dosage: 5 MG, QD
     Route: 048
     Dates: start: 20110501
  3. CHLORPROMAZINE [Concomitant]
     Indication: PSYCHOTIC DISORDER
     Dosage: 50 MG, TID
     Dates: start: 20100616
  4. DICLOFENAC [Concomitant]
     Indication: ARTHRALGIA
     Dosage: 50 MG, TID
     Dates: start: 20100101
  5. NIFEDIPINE [Concomitant]
     Indication: RAYNAUD'S PHENOMENON
     Dosage: 5 MG, QD
     Route: 048
     Dates: start: 20070101

REACTIONS (2)
  - DIPLOPIA [None]
  - PANIC ATTACK [None]
